FAERS Safety Report 12846134 (Version 2)
Quarter: 2016Q4

REPORT INFORMATION
  Report Type: Spontaneous
  Country: SE (occurrence: SE)
  Receive Date: 20161014
  Receipt Date: 20161220
  Transmission Date: 20170207
  Serious: Yes (Other)
  Sender: FDA-Public Use
  Company Number: SE-ROCHE-1841416

PATIENT
  Age: 31 Year
  Sex: Male

DRUGS (11)
  1. SYMBICORT [Concomitant]
     Active Substance: BUDESONIDE\FORMOTEROL FUMARATE DIHYDRATE
     Route: 065
  2. MYCOSTATIN [Concomitant]
     Active Substance: NYSTATIN
     Dosage: 100000 IU/ML
     Route: 048
  3. BACTRIM [Concomitant]
     Active Substance: SULFAMETHOXAZOLE\TRIMETHOPRIM
     Dosage: 400/80 MG
     Route: 065
  4. MABTHERA [Suspect]
     Active Substance: RITUXIMAB
     Indication: IGA NEPHROPATHY
     Route: 042
     Dates: start: 20151112, end: 20151112
  5. MABTHERA [Suspect]
     Active Substance: RITUXIMAB
     Route: 042
     Dates: start: 20151126, end: 20151126
  6. KALCIPOS-D [Concomitant]
     Active Substance: CALCIUM CARBONATE\CHOLECALCIFEROL
     Dosage: 500 MG/400 IE
     Route: 065
  7. METOPROLOL. [Concomitant]
     Active Substance: METOPROLOL
     Route: 065
  8. AMLODIPIN [Concomitant]
     Active Substance: AMLODIPINE BESYLATE
     Route: 065
  9. PREDNISOLON [Concomitant]
     Active Substance: PREDNISOLONE
     Route: 065
  10. IMOVANE [Concomitant]
     Active Substance: ZOPICLONE
     Route: 065
  11. OMEPRAZOL [Concomitant]
     Active Substance: OMEPRAZOLE
     Route: 065

REACTIONS (1)
  - Deep vein thrombosis [Recovered/Resolved]
